FAERS Safety Report 5965944-8 (Version None)
Quarter: 2008Q4

REPORT INFORMATION
  Report Type: 
  Country: None (occurrence: None)
  Receive Date: 20081125
  Receipt Date: 20081113
  Transmission Date: 20090506
  Serious: Yes (Death, Hospitalization)
  Sender: FDA-Public Use
  Company Number: ES-ELI_LILLY_AND_COMPANY-ES200811003512

PATIENT
  Age: 71 Year
  Sex: Female

DRUGS (11)
  1. FORTEO [Suspect]
     Indication: OSTEOPOROSIS
     Dosage: 20 UG, UNKNOWN
     Route: 058
     Dates: start: 20080501
  2. PROZAC [Suspect]
     Indication: DEPRESSION
     Dosage: UNK, UNKNOWN
     Route: 048
  3. FERRO SANOL [Concomitant]
     Dosage: UNK, UNKNOWN
     Route: 065
  4. METFORMIN HCL [Concomitant]
     Dosage: UNK, UNKNOWN
     Route: 065
  5. IBUPROFEN TABLETS [Concomitant]
     Dosage: UNK, UNKNOWN
     Route: 065
  6. AMARYL [Concomitant]
     Dosage: UNK, UNKNOWN
     Route: 065
  7. PLAVIX [Concomitant]
     Dosage: UNK, UNKNOWN
     Route: 065
  8. DIAZEPAM [Concomitant]
     Dosage: UNK, UNKNOWN
     Route: 065
  9. HIDROFEROL [Concomitant]
     Dosage: UNK, EACH 15 DAYS
     Route: 065
  10. TRIPTIZOL [Concomitant]
     Dosage: UNK, UNKNOWN
     Route: 065
  11. OCTOVIT [Concomitant]
     Dosage: UNK, EACH 30 DAYS
     Route: 065

REACTIONS (4)
  - BLOOD GLUCOSE DECREASED [None]
  - COMA [None]
  - DEATH [None]
  - RENAL FAILURE [None]
